FAERS Safety Report 8221891-2 (Version None)
Quarter: 2012Q1

REPORT INFORMATION
  Report Type: 
  Country: None (occurrence: None)
  Receive Date: 20120320
  Receipt Date: 20120309
  Transmission Date: 20120608
  Serious: No
  Sender: FDA-Public Use
  Company Number: US-JNJFOC-20120203221

PATIENT
  Sex: Female
  Weight: 32.75 kg

DRUGS (6)
  1. REMICADE [Suspect]
     Dosage: HAS RECEIVED 2 DOSES
     Route: 042
     Dates: start: 20120105
  2. REMICADE [Suspect]
     Dosage: HAS RECEIVED 2 DOSES
     Route: 042
     Dates: start: 20120105
  3. REMICADE [Suspect]
     Route: 042
     Dates: start: 20120117
  4. REMICADE [Suspect]
     Indication: INFLAMMATORY BOWEL DISEASE
     Route: 042
     Dates: start: 20120214
  5. REMICADE [Suspect]
     Route: 042
     Dates: start: 20120117
  6. REMICADE [Suspect]
     Indication: CROHN'S DISEASE
     Route: 042
     Dates: start: 20120214

REACTIONS (1)
  - HENOCH-SCHONLEIN PURPURA [None]
